FAERS Safety Report 24395007 (Version 1)
Quarter: 2024Q4

REPORT INFORMATION
  Report Type: Spontaneous
  Country: AU (occurrence: AU)
  Receive Date: 20241004
  Receipt Date: 20241004
  Transmission Date: 20250115
  Serious: No
  Sender: ALKEM
  Company Number: AU-ALKEM LABORATORIES LIMITED-AU-ALKEM-2024-16839

PATIENT
  Age: 38 Year
  Sex: Female

DRUGS (1)
  1. LURASIDONE [Suspect]
     Active Substance: LURASIDONE
     Indication: Product used for unknown indication
     Dosage: UNK
     Route: 065

REACTIONS (7)
  - Breast disorder [Unknown]
  - Confusional state [Unknown]
  - Menstruation irregular [Unknown]
  - Abnormal dreams [Unknown]
  - Muscle spasms [Unknown]
  - Restlessness [Unknown]
  - Vision blurred [Unknown]
